FAERS Safety Report 5082088-0 (Version None)
Quarter: 2006Q3

REPORT INFORMATION
  Report Type: 
  Country: None (occurrence: None)
  Receive Date: 20060720
  Receipt Date: 20060511
  Transmission Date: 20061208
  Serious: Yes (Hospitalization)
  Sender: FDA-Public Use
  Company Number: 2006057785

PATIENT
  Age: 58 Year
  Sex: Male
  Weight: 106.5953 kg

DRUGS (7)
  1. CELEBREX [Suspect]
     Indication: ARTHRITIS
     Dosage: 200 MG (200 MG, 1 IN 1 D), ORAL
     Route: 048
  2. ZESTRIL [Concomitant]
  3. HYDROCHLOROTHIAZIDE [Concomitant]
  4. MAGNESIUM (MAGNESIUM) [Concomitant]
  5. MULTIVITAMIN [Concomitant]
  6. GLUCOSAMINE (GLUCOSAMINE) [Concomitant]
  7. ALL OTHER THERAPEUTIC PRODUCTS (ALL OTHER THERAPEUTIC PRODUCTS) [Concomitant]

REACTIONS (1)
  - MYOCARDIAL INFARCTION [None]
